FAERS Safety Report 5890027-5 (Version None)
Quarter: 2008Q3

REPORT INFORMATION
  Report Type: 
  Country: None (occurrence: None)
  Receive Date: 20080919
  Receipt Date: 20080908
  Transmission Date: 20090109
  Serious: Yes (Other)
  Sender: FDA-Public Use
  Company Number: US-PFIZER INC-2008054828

PATIENT
  Sex: Female
  Weight: 74.4 kg

DRUGS (12)
  1. LYRICA [Suspect]
     Indication: FIBROMYALGIA
     Route: 048
     Dates: start: 20080103
  2. NEURONTIN [Suspect]
     Indication: NEUROPATHY PERIPHERAL
     Dates: start: 20060101, end: 20080101
  3. INDERAL [Concomitant]
  4. DARVOCET-N 100 [Concomitant]
  5. CYMBALTA [Concomitant]
  6. RELAFEN [Concomitant]
  7. MULTI-VITAMINS [Concomitant]
  8. VITAMIN E [Concomitant]
  9. VITAMIN B [Concomitant]
  10. IMITREX [Concomitant]
  11. NASACORT [Concomitant]
  12. BENADRYL [Concomitant]

REACTIONS (4)
  - ABASIA [None]
  - CONVULSION [None]
  - LACK OF SPONTANEOUS SPEECH [None]
  - VISION BLURRED [None]
